APPROVED DRUG PRODUCT: JULUCA
Active Ingredient: DOLUTEGRAVIR SODIUM; RILPIVIRINE HYDROCHLORIDE
Strength: EQ 50MG BASE;EQ 25MG BASE
Dosage Form/Route: TABLET;ORAL
Application: N210192 | Product #001
Applicant: VIIV HEALTHCARE CO
Approved: Nov 21, 2017 | RLD: Yes | RS: Yes | Type: RX

PATENTS:
Patent 10426780 | Expires: Jan 24, 2031
Patent 9242986 | Expires: Dec 8, 2029
Patent 12011506 | Expires: Sep 5, 2038
Patent 8129385 | Expires: Oct 5, 2027
Patent 8129385*PED | Expires: Apr 5, 2028
Patent 9242986*PED | Expires: Jun 8, 2030